FAERS Safety Report 4866907-6 (Version None)
Quarter: 2005Q4

REPORT INFORMATION
  Report Type: 
  Country: None (occurrence: None)
  Receive Date: 20051222
  Receipt Date: 20051205
  Transmission Date: 20060501
  Serious: Yes (Other)
  Sender: FDA-Public Use
  Company Number: 200510963

PATIENT
  Age: 8 Year
  Sex: Female

DRUGS (1)
  1. BOTOX [Suspect]
     Dosage: 120 UNITS ONCE IM
     Route: 030
     Dates: start: 20050928

REACTIONS (2)
  - CONDITION AGGRAVATED [None]
  - CONVULSION [None]
